FAERS Safety Report 11786493 (Version 2)
Quarter: 2015Q4

REPORT INFORMATION
  Report Type: Spontaneous
  Country: US (occurrence: US)
  Receive Date: 20151130
  Receipt Date: 20151202
  Transmission Date: 20160305
  Serious: Yes (Other)
  Sender: FDA-Public Use
  Company Number: US-PFIZER INC-2015406475

PATIENT
  Age: 34 Year
  Sex: Female
  Weight: 60 kg

DRUGS (3)
  1. PRISTIQ EXTENDED RELEASE [Suspect]
     Active Substance: DESVENLAFAXINE SUCCINATE
     Indication: BIPOLAR DISORDER
     Dosage: 50 MG, 1X/DAY, IN THE MORNING
  2. PRISTIQ EXTENDED RELEASE [Suspect]
     Active Substance: DESVENLAFAXINE SUCCINATE
     Indication: BIPOLAR I DISORDER
     Dosage: 100 MG, 1X/DAY, WHEN SHE GETS UP
  3. VITAMINS [Concomitant]
     Active Substance: VITAMINS
     Dosage: UNK

REACTIONS (7)
  - Suicide attempt [Unknown]
  - Bipolar disorder [Unknown]
  - Condition aggravated [Unknown]
  - Cerebral disorder [Unknown]
  - Fatigue [Unknown]
  - Product use issue [Unknown]
  - Depression [Unknown]
